FAERS Safety Report 12847785 (Version 1)
Quarter: 2016Q4

REPORT INFORMATION
  Report Type: Spontaneous
  Country: US (occurrence: US)
  Receive Date: 20161014
  Receipt Date: 20161014
  Transmission Date: 20170207
  Serious: No
  Sender: FDA-Public Use
  Company Number: US-JNJFOC-20160810151

PATIENT
  Age: 88 Year
  Sex: Female
  Weight: 81.65 kg

DRUGS (2)
  1. TYLENOL EXTRA STRENGTH [Suspect]
     Active Substance: ACETAMINOPHEN
     Indication: PAIN
     Dosage: 1 PER DAY AS NEEDED.
     Route: 048
     Dates: start: 20160810, end: 20160810
  2. TYLENOL EXTRA STRENGTH [Suspect]
     Active Substance: ACETAMINOPHEN
     Indication: PAIN
     Dosage: 1 AS NEEDED
     Route: 048

REACTIONS (3)
  - Incorrect dose administered [Unknown]
  - Product packaging issue [Unknown]
  - Onychoclasis [Recovered/Resolved]

NARRATIVE: CASE EVENT DATE: 20160810
